FAERS Safety Report 5618645-X (Version None)
Quarter: 2008Q1

REPORT INFORMATION
  Report Type: 
  Country: None (occurrence: None)
  Receive Date: 20080205
  Receipt Date: 20080205
  Transmission Date: 20080703
  Serious: Yes (Other)
  Sender: FDA-Public Use
  Company Number: None

PATIENT
  Age: 31 Year
  Sex: Female
  Weight: 58.9676 kg

DRUGS (3)
  1. LEXAPRO [Suspect]
     Indication: CHEST PAIN
     Dosage: 10 MG  1 QD  PO
     Route: 048
     Dates: start: 20060131, end: 20060630
  2. LEXAPRO [Suspect]
     Indication: DEATH OF RELATIVE
     Dosage: 10 MG  1 QD  PO
     Route: 048
     Dates: start: 20060131, end: 20060630
  3. LEXAPRO [Suspect]
     Indication: DEPRESSION
     Dosage: 10 MG  1 QD  PO
     Route: 048
     Dates: start: 20060131, end: 20060630

REACTIONS (1)
  - CONTUSION [None]
